FAERS Safety Report 8129338-1 (Version None)
Quarter: 2012Q1

REPORT INFORMATION
  Report Type: 
  Country: None (occurrence: None)
  Receive Date: 20120103
  Receipt Date: 20110901
  Transmission Date: 20120608
  Serious: No
  Sender: FDA-Public Use
  Company Number: AE-2011-001274

PATIENT
  Sex: Male

DRUGS (4)
  1. PEGASYS [Concomitant]
  2. INCIVEK [Suspect]
     Dosage: (2 PO TID), ORAL
     Route: 048
     Dates: start: 20110823
  3. RIBAVIRIN [Concomitant]
  4. LUNESTRA (ESZOPICLONE) [Concomitant]

REACTIONS (2)
  - INFLUENZA LIKE ILLNESS [None]
  - INSOMNIA [None]
